FAERS Safety Report 4399993-0 (Version None)
Quarter: 2004Q3

REPORT INFORMATION
  Report Type: 
  Country: None (occurrence: None)
  Receive Date: 20040714
  Receipt Date: 20040705
  Transmission Date: 20050211
  Serious: Yes (Hospitalization)
  Sender: FDA-Public Use
  Company Number: 2004-06-1701

PATIENT
  Age: 72 Year
  Sex: Female

DRUGS (1)
  1. INTRON A [Suspect]
     Indication: METASTATIC MALIGNANT MELANOMA
     Dosage: SEE IMAGE
     Route: 058
     Dates: start: 19980712

REACTIONS (8)
  - BRAIN SCAN ABNORMAL [None]
  - CEREBRAL ISCHAEMIA [None]
  - DEMYELINATION [None]
  - ELECTROENCEPHALOGRAM ABNORMAL [None]
  - LEUKODYSTROPHY [None]
  - LOSS OF CONSCIOUSNESS [None]
  - TRANSIENT ISCHAEMIC ATTACK [None]
  - TREMOR [None]
